FAERS Safety Report 5321151-3 (Version None)
Quarter: 2007Q2

REPORT INFORMATION
  Report Type: 
  Country: None (occurrence: None)
  Receive Date: 20070510
  Receipt Date: 20070508
  Transmission Date: 20071010
  Serious: Yes (Other)
  Sender: FDA-Public Use
  Company Number: HQWYE085808MAY07

PATIENT
  Age: 65 Year
  Sex: Male
  Weight: 86.2 kg

DRUGS (1)
  1. TYGACIL [Suspect]
     Indication: DIVERTICULITIS
     Route: 040
     Dates: start: 20070413, end: 20070416

REACTIONS (3)
  - COORDINATION ABNORMAL [None]
  - NAUSEA [None]
  - TINNITUS [None]
